FAERS Safety Report 9967054 (Version 1)
Quarter: 2014Q1

REPORT INFORMATION
  Report Type: Other
  Country: US (occurrence: US)
  Receive Date: 20140305
  Receipt Date: 20140305
  Transmission Date: 20141002
  Serious: Yes (Death)
  Sender: FDA-Public Use
  Company Number: US-FRI-1000054855

PATIENT
  Age: 86 Year
  Sex: Female

DRUGS (9)
  1. ESCITALOPRAM [Suspect]
  2. LEVOTHROID [Suspect]
  3. ACETAMINOPHEN/HYDROCODONE [Suspect]
  4. ISOSORBIDE MONONITRATE [Suspect]
  5. AMLODIPINE [Suspect]
  6. DOXAZOSIN [Suspect]
  7. WARFARIN [Suspect]
  8. FUROSEMIDE [Suspect]
  9. POTASSIUM [Suspect]

REACTIONS (3)
  - Completed suicide [Fatal]
  - Cardiac arrest [None]
  - Respiratory arrest [None]
